FAERS Safety Report 19305305 (Version 1)
Quarter: 2021Q2

REPORT INFORMATION
  Report Type: Spontaneous
  Country: US (occurrence: US)
  Receive Date: 20210526
  Receipt Date: 20210526
  Transmission Date: 20210717
  Serious: No
  Sender: FDA-Public Use
  Company Number: US-AMGEN-USASP2021078654

PATIENT
  Age: 43 Year
  Sex: Female

DRUGS (1)
  1. OTEZLA [Suspect]
     Active Substance: APREMILAST
     Indication: PSORIATIC ARTHROPATHY
     Dosage: 30 MILLIGRAM, BID
     Route: 065
     Dates: end: 20210515

REACTIONS (12)
  - Blood glucose decreased [Not Recovered/Not Resolved]
  - Vomiting [Unknown]
  - Tremor [Unknown]
  - Confusional state [Unknown]
  - Illness [Not Recovered/Not Resolved]
  - Insomnia [Unknown]
  - Dizziness [Unknown]
  - Diarrhoea [Not Recovered/Not Resolved]
  - Feeding disorder [Not Recovered/Not Resolved]
  - Abdominal pain upper [Not Recovered/Not Resolved]
  - Dehydration [Unknown]
  - Nausea [Not Recovered/Not Resolved]

NARRATIVE: CASE EVENT DATE: 202105
